FAERS Safety Report 4341130-2 (Version None)
Quarter: 2004Q2

REPORT INFORMATION
  Report Type: 
  Country: None (occurrence: None)
  Receive Date: 20040413
  Receipt Date: 20040405
  Transmission Date: 20050107
  Serious: Yes (Disabling)
  Sender: FDA-Public Use
  Company Number: TPG2004A00002

PATIENT
  Age: 39 Year
  Sex: Male

DRUGS (4)
  1. ACTOS [Suspect]
     Indication: DIABETES MELLITUS NON-INSULIN-DEPENDENT
     Dosage: SEE IMAGE PER ORAL
     Route: 048
     Dates: start: 20030101, end: 20030901
  2. ACTOS [Suspect]
     Indication: DIABETES MELLITUS NON-INSULIN-DEPENDENT
     Dosage: SEE IMAGE PER ORAL
     Route: 048
     Dates: start: 20021201
  3. DEPAKENE [Suspect]
     Indication: EPILEPSY
     Dosage: 1500 MG (500 MG, 3 IN 1 D) PER ORAL
     Route: 048
     Dates: start: 20011001
  4. GLUCOPHAGE [Concomitant]

REACTIONS (2)
  - DISEASE RECURRENCE [None]
  - PETIT MAL EPILEPSY [None]
